FAERS Safety Report 5356781-6 (Version None)
Quarter: 2007Q2

REPORT INFORMATION
  Report Type: 
  Country: None (occurrence: None)
  Receive Date: 20070614
  Receipt Date: 20061024
  Transmission Date: 20071010
  Serious: No
  Sender: FDA-Public Use
  Company Number: US-ASTRAZENECA-2006UW16806

PATIENT
  Age: 76 Year
  Sex: Male
  Weight: 83.9 kg

DRUGS (5)
  1. ATACAND [Suspect]
     Indication: BLOOD PRESSURE
     Route: 048
  2. NORVASC [Concomitant]
  3. GLIPIZIDE [Concomitant]
     Dosage: 5 AND 10 MG
  4. COLESTID [Concomitant]
  5. LOVASTATIN [Concomitant]

REACTIONS (2)
  - ANGIOEDEMA [None]
  - SWELLING FACE [None]
